FAERS Safety Report 16117120 (Version 1)
Quarter: 2019Q1

REPORT INFORMATION
  Report Type: Spontaneous
  Country: US (occurrence: US)
  Receive Date: 20190221
  Receipt Date: 20190221
  Transmission Date: 20190418
  Serious: Yes (Hospitalization)
  Sender: FDA-Public Use
  Company Number: None

PATIENT
  Sex: Female

DRUGS (2)
  1. PANTORAZOLE [Concomitant]
  2. IBRANCE [Suspect]
     Active Substance: PALBOCICLIB
     Indication: OESTROGEN RECEPTOR ASSAY POSITIVE
     Dosage: ?          OTHER FREQUENCY:QAM X21 OFF 7;?
     Route: 048

REACTIONS (4)
  - Vomiting [None]
  - Nausea [None]
  - White blood cell count decreased [None]
  - Platelet count decreased [None]
